FAERS Safety Report 5655866-4 (Version None)
Quarter: 2008Q1

REPORT INFORMATION
  Report Type: 
  Country: None (occurrence: None)
  Receive Date: 20080307
  Receipt Date: 20080226
  Transmission Date: 20080703
  Serious: Yes (Other)
  Sender: FDA-Public Use
  Company Number: CN-PFIZER INC-2008015516

PATIENT
  Age: 43 Year
  Sex: Male
  Weight: 62 kg

DRUGS (3)
  1. VFEND [Suspect]
     Indication: FUNGAL INFECTION
     Route: 042
     Dates: start: 20080210, end: 20080212
  2. LAMIVUDINE [Concomitant]
     Route: 048
  3. CALCIUM [Concomitant]
     Route: 048

REACTIONS (6)
  - HALLUCINATION [None]
  - HALLUCINATION, AUDITORY [None]
  - HALLUCINATION, VISUAL [None]
  - PERSECUTORY DELUSION [None]
  - PSYCHOTIC DISORDER [None]
  - XANTHOPSIA [None]
